FAERS Safety Report 9266828 (Version 1)
Quarter: 2013Q2

REPORT INFORMATION
  Report Type: Other
  Country: GB (occurrence: GB)
  Receive Date: 20130502
  Receipt Date: 20130502
  Transmission Date: 20140414
  Serious: Yes (Hospitalization, Other)
  Sender: FDA-Public Use
  Company Number: GB-PERRIGO-13GB004611

PATIENT
  Age: 61 Year
  Sex: Male
  Weight: 80.2 kg

DRUGS (5)
  1. IBUPROFEN 16028/0013 200 MG [Suspect]
     Indication: PAIN
     Dosage: UNK
     Route: 048
     Dates: start: 20130207, end: 20130208
  2. STELARA [Suspect]
     Indication: PSORIASIS
     Dosage: 45 MG ONCE EVERY 12 WEEKS
     Route: 058
     Dates: start: 20121218
  3. STELARA [Suspect]
     Dosage: 45 MG ONCE EVERY 12 WEEKS
     Dates: start: 20121120
  4. CO-TENIDONE [Concomitant]
     Indication: PRODUCT USED FOR UNKNOWN INDICATION
     Dosage: UNK
     Route: 048
     Dates: start: 20100720
  5. LOSARTAN [Concomitant]
     Indication: HYPERTENSION
     Dosage: UNK
     Route: 048
     Dates: start: 20100720

REACTIONS (5)
  - Anaphylactic reaction [Recovered/Resolved]
  - Loss of consciousness [Recovered/Resolved]
  - Hypotension [Recovered/Resolved]
  - Angioedema [Recovered/Resolved]
  - Pruritus [Recovered/Resolved]
